FAERS Safety Report 4712019-1 (Version None)
Quarter: 2005Q2

REPORT INFORMATION
  Report Type: 
  Country: None (occurrence: None)
  Receive Date: 20050629
  Receipt Date: 20050411
  Transmission Date: 20051028
  Serious: No
  Sender: FDA-Public Use
  Company Number: 05P-163-0297064-00

PATIENT
  Age: 82 Year
  Sex: Female
  Weight: 54.4316 kg

DRUGS (11)
  1. HUMIRA [Suspect]
     Indication: RHEUMATOID ARTHRITIS
     Dosage: 40 MG, 1 IN 2 WK, SUBCUTANEOUS
     Route: 058
     Dates: start: 20041101
  2. ROFECOXIB [Concomitant]
  3. NAPROXEN SODIUM [Concomitant]
  4. MELOXICAM [Concomitant]
  5. VITAMINS [Concomitant]
  6. PREDNISONE [Concomitant]
  7. NALTREXONE HYDROCHLORIDE [Concomitant]
  8. RISENDRONATE SODIUM [Concomitant]
  9. OMEPRAZOLE [Concomitant]
  10. TRAZEDONE [Concomitant]
  11. PAROXETINE HYDROCHLORIDE [Concomitant]

REACTIONS (2)
  - ANAEMIA [None]
  - RHEUMATOID ARTHRITIS [None]
